FAERS Safety Report 4354699-9 (Version None)
Quarter: 2004Q2

REPORT INFORMATION
  Report Type: 
  Country: None (occurrence: None)
  Receive Date: 20040503
  Receipt Date: 20040421
  Transmission Date: 20050107
  Serious: No
  Sender: FDA-Public Use
  Company Number: 04H-163-0259056-00

PATIENT
  Sex: 0

DRUGS (1)
  1. MORPHINE SUL INJ [Suspect]
     Indication: PAIN MANAGEMENT
     Dosage: INTRAVENOUS
     Route: 042
     Dates: start: 20040326

REACTIONS (2)
  - DEPRESSED LEVEL OF CONSCIOUSNESS [None]
  - SOMNOLENCE [None]
